FAERS Safety Report 9787744 (Version 6)
Quarter: 2014Q1

REPORT INFORMATION
  Report Type: Report from Study
  Country: US (occurrence: US)
  Receive Date: 20131230
  Receipt Date: 20140218
  Transmission Date: 20141002
  Serious: Yes (Other)
  Sender: FDA-Public Use
  Company Number: US-TEVA-453276USA

PATIENT
  Age: 34 Year
  Sex: Female

DRUGS (2)
  1. CLARAVIS [Suspect]
     Dosage: 40 MILLIGRAM DAILY;
     Dates: start: 20131127, end: 20131220
  2. BIRTH CONTROL PILLS [Concomitant]

REACTIONS (1)
  - Unintended pregnancy [Recovered/Resolved]
